FAERS Safety Report 6110748-9 (Version None)
Quarter: 2009Q1

REPORT INFORMATION
  Report Type: 
  Country: None (occurrence: None)
  Receive Date: 20090309
  Receipt Date: 20090302
  Transmission Date: 20090719
  Serious: Yes (Hospitalization)
  Sender: FDA-Public Use
  Company Number: KV200900263

PATIENT
  Age: 51 Year
  Sex: Female

DRUGS (3)
  1. ENCORA(VITAMIN/MINERAL NUTRITIONAL SUPPLEMENT) TABLET [Suspect]
     Indication: MENOPAUSAL SYMPTOMS
     Dosage: ORAL
     Route: 048
     Dates: end: 20090101
  2. XANAX [Concomitant]
  3. ZOFRAN/00955301/  (ONDANSETRON) [Concomitant]

REACTIONS (5)
  - DEHYDRATION [None]
  - DIARRHOEA [None]
  - HELICOBACTER GASTRITIS [None]
  - NAUSEA [None]
  - VOMITING [None]
